FAERS Safety Report 7956851-X (Version None)
Quarter: 2011Q4

REPORT INFORMATION
  Report Type: 
  Country: None (occurrence: None)
  Receive Date: 20111205
  Receipt Date: 20111018
  Transmission Date: 20120403
  Serious: No
  Sender: FDA-Public Use
  Company Number: US-BAYER-2011-102398

PATIENT
  Sex: Male
  Weight: 70 kg

DRUGS (3)
  1. ALEVE (CAPLET) [Suspect]
     Indication: PAIN
     Dosage: 1 DF, QD
     Route: 048
     Dates: start: 20091018
  2. SPIRIVA [Concomitant]
  3. OMASAR [Concomitant]

REACTIONS (1)
  - NO ADVERSE EVENT [None]
